FAERS Safety Report 16513781 (Version 1)
Quarter: 2019Q3

REPORT INFORMATION
  Report Type: Spontaneous
  Country: US (occurrence: US)
  Receive Date: 20190701
  Receipt Date: 20190701
  Transmission Date: 20191004
  Serious: No
  Sender: FDA-Public Use
  Company Number: US-ROCHE-2141980

PATIENT
  Age: 31 Year
  Sex: Male

DRUGS (2)
  1. BRIVARACETAM [Concomitant]
     Active Substance: BRIVARACETAM
     Indication: MYOCLONUS
  2. KLONOPIN [Suspect]
     Active Substance: CLONAZEPAM
     Indication: POST-ANOXIC MYOCLONUS
     Route: 065

REACTIONS (2)
  - Fatigue [Unknown]
  - Somnolence [Recovered/Resolved]
